FAERS Safety Report 17293239 (Version 1)
Quarter: 2020Q1

REPORT INFORMATION
  Report Type: Spontaneous
  Country: US (occurrence: US)
  Receive Date: 20200120
  Receipt Date: 20200120
  Transmission Date: 20200409
  Serious: Yes (Other)
  Sender: FDA-Public Use
  Company Number: None

PATIENT
  Age: 40 Year
  Sex: Female
  Weight: 54 kg

DRUGS (3)
  1. VITAMIN D [Concomitant]
     Active Substance: VITAMIN D NOS
  2. GLATIRAMER ACETATE INJECTION [Suspect]
     Active Substance: GLATIRAMER ACETATE
     Indication: MULTIPLE SCLEROSIS
     Dosage: ?          QUANTITY:1 INJECTION(S);OTHER FREQUENCY:THREE TIMES A WEEK;?
     Route: 058
  3. METRONIDAZOLE TOPICAL CREAM, 0.75% [Concomitant]

REACTIONS (5)
  - Lip swelling [None]
  - Nausea [None]
  - Palpitations [None]
  - Throat tightness [None]
  - Paraesthesia [None]

NARRATIVE: CASE EVENT DATE: 20200120
